FAERS Safety Report 20902692 (Version 1)
Quarter: 2022Q2

REPORT INFORMATION
  Report Type: Spontaneous
  Country: CN (occurrence: CN)
  Receive Date: 20220601
  Receipt Date: 20220601
  Transmission Date: 20220720
  Serious: Yes (Hospitalization)
  Sender: FDA-Public Use
  Company Number: CN-ELI_LILLY_AND_COMPANY-CN202205008979

PATIENT
  Age: 56 Year
  Sex: Female
  Weight: 69 kg

DRUGS (3)
  1. ABEMACICLIB [Suspect]
     Active Substance: ABEMACICLIB
     Indication: Metastases to lung
     Dosage: 150 MG, BID
     Route: 048
     Dates: start: 20220125, end: 20220519
  2. ABEMACICLIB [Suspect]
     Active Substance: ABEMACICLIB
     Indication: Metastases to bone
  3. ABEMACICLIB [Suspect]
     Active Substance: ABEMACICLIB
     Indication: Breast cancer

REACTIONS (5)
  - Skin plaque [Unknown]
  - Rash papular [Unknown]
  - Pruritus [Unknown]
  - Scab [Unknown]
  - Pain of skin [Unknown]

NARRATIVE: CASE EVENT DATE: 20220310
